FAERS Safety Report 8339677-7 (Version None)
Quarter: 2012Q2

REPORT INFORMATION
  Report Type: 
  Country: None (occurrence: None)
  Receive Date: 20120507
  Receipt Date: 20120504
  Transmission Date: 20120825
  Serious: Yes (Death)
  Sender: FDA-Public Use
  Company Number: PHHY2012CH037799

PATIENT

DRUGS (7)
  1. STEROIDS NOS [Concomitant]
  2. CERTICAN [Suspect]
     Indication: HEART TRANSPLANT
  3. MYCOPHENOLIC ACID [Concomitant]
  4. TACROLIMUS [Concomitant]
  5. AZATHIOPRINE [Concomitant]
  6. STATINS [Concomitant]
  7. CYCLOSPORINE [Concomitant]

REACTIONS (1)
  - DEATH [None]
